FAERS Safety Report 20705216 (Version 2)
Quarter: 2022Q2

REPORT INFORMATION
  Report Type: Spontaneous
  Country: US (occurrence: US)
  Receive Date: 20220413
  Receipt Date: 20220420
  Transmission Date: 20220721
  Serious: No
  Sender: FDA-Public Use
  Company Number: US-AIMMUNE THERAPEUTICS, INC.-2022AIMT00281

PATIENT

DRUGS (1)
  1. PALFORZIA [Suspect]
     Active Substance: PEANUT
     Indication: Food allergy
     Dosage: 6 MG, 1X/DAY
     Route: 048
     Dates: start: 20220324

REACTIONS (6)
  - Seasonal allergy [Unknown]
  - Nasal congestion [Unknown]
  - Ear pain [Unknown]
  - Rhinorrhoea [Unknown]
  - Pruritus [Unknown]
  - Sneezing [Unknown]

NARRATIVE: CASE EVENT DATE: 20220407
